FAERS Safety Report 22350268 (Version 1)
Quarter: 2023Q2

REPORT INFORMATION
  Report Type: Spontaneous
  Country: US (occurrence: US)
  Receive Date: 20230522
  Receipt Date: 20230522
  Transmission Date: 20230722
  Serious: No
  Sender: FDA-Public Use
  Company Number: US-SA-2023SA131193

PATIENT
  Sex: Male

DRUGS (1)
  1. DUPIXENT [Suspect]
     Active Substance: DUPILUMAB
     Dosage: 50 MG, OTHER
     Route: 058

REACTIONS (5)
  - Fatigue [Unknown]
  - Myalgia [Unknown]
  - Muscular weakness [Unknown]
  - Arthralgia [Unknown]
  - Incorrect dose administered [Unknown]
